FAERS Safety Report 4965790-8 (Version None)
Quarter: 2006Q2

REPORT INFORMATION
  Report Type: 
  Country: None (occurrence: None)
  Receive Date: 20060406
  Receipt Date: 20060406
  Transmission Date: 20061013
  Serious: No
  Sender: FDA-Public Use
  Company Number: None

PATIENT
  Age: 48 Year
  Sex: Male
  Weight: 85 kg

DRUGS (1)
  1. PLAVIX [Suspect]
     Indication: ARTERIOSCLEROSIS
     Dosage: 75 MG 1X/ 1 DAY ORAL
     Route: 048
     Dates: start: 20040601

REACTIONS (4)
  - NERVE INJURY [None]
  - NEURITIS [None]
  - PAIN [None]
  - PAIN IN EXTREMITY [None]
